FAERS Safety Report 7955153-5 (Version None)
Quarter: 2011Q4

REPORT INFORMATION
  Report Type: 
  Country: None (occurrence: None)
  Receive Date: 20111202
  Receipt Date: 20111128
  Transmission Date: 20120403
  Serious: Yes (Other)
  Sender: FDA-Public Use
  Company Number: BR-JNJFOC-20111108230

PATIENT
  Age: 43 Year
  Sex: Male
  Weight: 74 kg

DRUGS (1)
  1. STELARA [Suspect]
     Indication: PSORIASIS
     Route: 058
     Dates: start: 20101207, end: 20110518

REACTIONS (3)
  - HEPATIC STEATOSIS [None]
  - HEPATIC CIRRHOSIS [None]
  - THROMBOCYTOPENIA [None]
